FAERS Safety Report 8624157-1 (Version None)
Quarter: 2012Q3

REPORT INFORMATION
  Report Type: 
  Country: None (occurrence: None)
  Receive Date: 20120824
  Receipt Date: 20120824
  Transmission Date: 20120928
  Serious: Yes (Life-Threatening, Hospitalization)
  Sender: FDA-Public Use
  Company Number: None

PATIENT
  Sex: Male
  Weight: 61.6892 kg

DRUGS (3)
  1. RISPERIDONE [Suspect]
     Indication: SCHIZOPHRENIA
     Dosage: 2 MG, BY MOUTH, QHS
     Dates: start: 20060101, end: 20120101
  2. RISPERDAL [Suspect]
     Indication: SCHIZOPHRENIA
     Dosage: IM EVERY 2 WEEKS
     Dates: start: 20060101
  3. WARFARIN SODIUM [Concomitant]

REACTIONS (1)
  - PULMONARY EMBOLISM [None]
